FAERS Safety Report 4385417-6 (Version None)
Quarter: 2004Q2

REPORT INFORMATION
  Report Type: 
  Country: None (occurrence: None)
  Receive Date: 20040625
  Receipt Date: 20040625
  Transmission Date: 20050107
  Serious: Yes (Hospitalization)
  Sender: FDA-Public Use
  Company Number: None

PATIENT

DRUGS (2)
  1. GATIFLOXACIN [Suspect]
     Dosage: 400 MG PO QD
     Route: 048
  2. GLIPIZIDE [Suspect]
     Dosage: 20MG BID

REACTIONS (2)
  - ELECTROCARDIOGRAM QT PROLONGED [None]
  - HYPOGLYCAEMIA [None]
